FAERS Safety Report 20290897 (Version 1)
Quarter: 2022Q1

REPORT INFORMATION
  Report Type: Spontaneous
  Country: US (occurrence: None)
  Receive Date: 20220103
  Receipt Date: 20220103
  Transmission Date: 20220423
  Serious: Yes (Disabling)
  Sender: FDA-Public Use
  Company Number: None

PATIENT
  Age: 49 Year
  Sex: Female
  Weight: 58.05 kg

DRUGS (1)
  1. ISOVUE 300 [Suspect]
     Active Substance: IOPAMIDOL
     Indication: Meningeal disorder
     Dosage: FREQUENCY : ONCE;?
     Dates: start: 20190911, end: 20190911

REACTIONS (8)
  - Hypoaesthesia [None]
  - Paraesthesia [None]
  - Hyperaesthesia [None]
  - Pruritus [None]
  - Alopecia [None]
  - Neuropathy peripheral [None]
  - Neurotoxicity [None]
  - Motor dysfunction [None]

NARRATIVE: CASE EVENT DATE: 20190911
